FAERS Safety Report 18770687 (Version 1)
Quarter: 2021Q1

REPORT INFORMATION
  Report Type: Report from Study
  Country: US (occurrence: US)
  Receive Date: 20210121
  Receipt Date: 20210121
  Transmission Date: 20210419
  Serious: Yes (Other)
  Sender: FDA-Public Use
  Company Number: US-JAZZ-2021-US-000560

PATIENT
  Sex: Female

DRUGS (7)
  1. VITAMIN A [RETINOL] [Concomitant]
     Active Substance: RETINOL
     Indication: PROPHYLAXIS
  2. VITAMIN C [Concomitant]
     Active Substance: ASCORBIC ACID
     Indication: PROPHYLAXIS
  3. XYREM [Suspect]
     Active Substance: SODIUM OXYBATE
     Dosage: 6 GRAM, BID
     Route: 048
     Dates: start: 201908
  4. XYREM [Suspect]
     Active Substance: SODIUM OXYBATE
     Dosage: DOSE ADJUSTMENT
     Route: 048
     Dates: start: 201612, end: 201908
  5. VITAMIN D [ERGOCALCIFEROL] [Concomitant]
     Active Substance: ERGOCALCIFEROL
     Indication: PROPHYLAXIS
  6. NALTREXONE [Concomitant]
     Active Substance: NALTREXONE
     Indication: PAIN
  7. XYREM [Suspect]
     Active Substance: SODIUM OXYBATE
     Indication: NARCOLEPSY
     Dosage: 1 GRAM, BID
     Route: 048
     Dates: start: 201612, end: 201612

REACTIONS (2)
  - Skin papilloma [Unknown]
  - Autoimmune disorder [Not Recovered/Not Resolved]
